FAERS Safety Report 22635579 (Version 5)
Quarter: 2023Q4

REPORT INFORMATION
  Report Type: Report from Study
  Country: US (occurrence: US)
  Receive Date: 20230623
  Receipt Date: 20231107
  Transmission Date: 20240109
  Serious: No
  Sender: FDA-Public Use
  Company Number: US-002147023-NVSC2023US143861

PATIENT
  Sex: Female

DRUGS (1)
  1. ENTRESTO [Suspect]
     Active Substance: SACUBITRIL\VALSARTAN
     Indication: Product used for unknown indication
     Dosage: 1 DOSAGE FORM, BID
     Route: 048
     Dates: start: 202211

REACTIONS (7)
  - Laryngitis [Recovering/Resolving]
  - Musculoskeletal discomfort [Unknown]
  - Condition aggravated [Unknown]
  - Stress [Unknown]
  - Depressed mood [Unknown]
  - Respiratory syncytial virus test [Unknown]
  - Cough [Unknown]

NARRATIVE: CASE EVENT DATE: 20230101
